FAERS Safety Report 6573001-5 (Version None)
Quarter: 2010Q1

REPORT INFORMATION
  Report Type: 
  Country: None (occurrence: None)
  Receive Date: 20100208
  Receipt Date: 20100125
  Transmission Date: 20100710
  Serious: Yes (Hospitalization)
  Sender: FDA-Public Use
  Company Number: US-RANBAXY-2010RR-30718

PATIENT
  Age: 71 Year
  Sex: Male

DRUGS (2)
  1. GABAPENTIN [Suspect]
     Indication: DIABETIC NEUROPATHY
     Dosage: 300 MG, QID
  2. GABAPENTIN [Concomitant]
     Dosage: 300 MG, 3/WEEK

REACTIONS (1)
  - MENTAL STATUS CHANGES [None]
